FAERS Safety Report 5659480-6 (Version None)
Quarter: 2008Q1

REPORT INFORMATION
  Report Type: 
  Country: None (occurrence: None)
  Receive Date: 20080311
  Receipt Date: 20080305
  Transmission Date: 20080703
  Serious: Yes (Hospitalization)
  Sender: FDA-Public Use
  Company Number: US-AVENTIS-200812102GDDC

PATIENT
  Age: 54 Year
  Sex: Male
  Weight: 60.3 kg

DRUGS (3)
  1. DOCETAXEL [Suspect]
     Dosage: DOSE: 61 MG AS TOTAL DOSE GIVEN THIS COURSE
     Route: 042
     Dates: start: 20080228, end: 20080228
  2. CODE UNBROKEN [Suspect]
     Dosage: DOSE: 500 MG AS TOTAL DOSE GIVEN THIS COURSE
     Route: 048
     Dates: start: 20080227, end: 20080229
  3. FENTANYL TRANSDERMAL SYSTEM [Suspect]

REACTIONS (4)
  - CONSTIPATION [None]
  - FACIAL PAIN [None]
  - HYPONATRAEMIA [None]
  - LOCALISED OEDEMA [None]
